FAERS Safety Report 17862167 (Version 1)
Quarter: 2020Q2

REPORT INFORMATION
  Report Type: Spontaneous
  Country: CA (occurrence: CA)
  Receive Date: 20200604
  Receipt Date: 20200604
  Transmission Date: 20200714
  Serious: Yes (Death, Other)
  Sender: FDA-Public Use
  Company Number: CA-BAXTER-2020BAX011164

PATIENT

DRUGS (42)
  1. UROMITEXAN (MESNA INJECTION) 100MG/ML [Suspect]
     Active Substance: MESNA
     Dosage: DOSAGE FORM: NOT SPECIFIED
     Route: 065
  2. ASPARAGINASE [Suspect]
     Active Substance: ASPARAGINASE
     Route: 065
  3. CYTARABINE. [Suspect]
     Active Substance: CYTARABINE
     Dosage: POWDER FOR SOLUTION INTRATHECAL
     Route: 065
  4. DEXAMETHASONE. [Suspect]
     Active Substance: DEXAMETHASONE
     Dosage: DOSAGE FORM: NOT SPECIFIED
     Route: 065
  5. HYDROCORTISONE. [Suspect]
     Active Substance: HYDROCORTISONE
     Indication: ACUTE LYMPHOCYTIC LEUKAEMIA
     Route: 065
  6. MERCAPTOPURINE. [Suspect]
     Active Substance: MERCAPTOPURINE
     Dosage: DOSAGE FORM: NOT SPECIFIED
     Route: 065
  7. METHYLPREDNISOLONE. [Suspect]
     Active Substance: METHYLPREDNISOLONE
     Indication: ACUTE LYMPHOCYTIC LEUKAEMIA
     Route: 065
  8. UROMITEXAN (MESNA INJECTION) 100MG/ML [Suspect]
     Active Substance: MESNA
     Indication: ACUTE LYMPHOCYTIC LEUKAEMIA
     Route: 065
  9. PROCYTOX (CYCLOPHOSPHAMIDE) 2000MG/VIAL [Suspect]
     Active Substance: CYCLOPHOSPHAMIDE
     Indication: ACUTE LYMPHOCYTIC LEUKAEMIA
     Route: 065
  10. CALCIUM FOLINATE [Suspect]
     Active Substance: LEUCOVORIN CALCIUM
     Indication: ACUTE LYMPHOCYTIC LEUKAEMIA
     Route: 065
  11. CYTARABINE. [Suspect]
     Active Substance: CYTARABINE
     Indication: ACUTE LYMPHOCYTIC LEUKAEMIA
     Dosage: POWDER FOR SOLUTION INTRATHECAL
     Route: 065
  12. DAUNORUBICIN [Suspect]
     Active Substance: DAUNORUBICIN
     Route: 065
  13. ETOPOSIDE. [Suspect]
     Active Substance: ETOPOSIDE
     Indication: ACUTE LYMPHOCYTIC LEUKAEMIA
     Dosage: DOSAGE FORM: NOT SPECIFED
     Route: 065
  14. FILGRASTIM [Suspect]
     Active Substance: FILGRASTIM
     Indication: ACUTE LYMPHOCYTIC LEUKAEMIA
     Route: 065
  15. MERCAPTOPURINE. [Suspect]
     Active Substance: MERCAPTOPURINE
     Indication: ACUTE LYMPHOCYTIC LEUKAEMIA
     Route: 065
  16. METHOTREXATE. [Suspect]
     Active Substance: METHOTREXATE
     Indication: ACUTE LYMPHOCYTIC LEUKAEMIA
     Route: 065
  17. PROCYTOX (CYCLOPHOSPHAMIDE) 2000MG/VIAL [Suspect]
     Active Substance: CYCLOPHOSPHAMIDE
     Dosage: DOSAGE FORM: NOT SPECIFIED
     Route: 065
  18. CICLOSPORIN [Suspect]
     Active Substance: CYCLOSPORINE
     Dosage: DOSAGE FORM: NOT SPECIFIED
     Route: 065
  19. FILGRASTIM [Suspect]
     Active Substance: FILGRASTIM
     Route: 065
  20. HYDROCORTISONE. [Suspect]
     Active Substance: HYDROCORTISONE
     Dosage: DOSAGE FORM: NOT SPECIFIED
     Route: 065
  21. METHYLPREDNISOLONE. [Suspect]
     Active Substance: METHYLPREDNISOLONE
     Route: 065
  22. PEGASPARGASE [Suspect]
     Active Substance: PEGASPARGASE
     Route: 065
  23. DEXAMETHASONE. [Suspect]
     Active Substance: DEXAMETHASONE
     Indication: ACUTE LYMPHOCYTIC LEUKAEMIA
     Route: 065
  24. PREDNISONE. [Suspect]
     Active Substance: PREDNISONE
     Indication: ACUTE LYMPHOCYTIC LEUKAEMIA
     Route: 065
  25. FOLINIC ACID [Suspect]
     Active Substance: LEUCOVORIN
     Indication: ACUTE LYMPHOCYTIC LEUKAEMIA
     Route: 065
  26. PROCYTOX (CYCLOPHOSPHAMIDE) 2000MG/VIAL [Suspect]
     Active Substance: CYCLOPHOSPHAMIDE
     Dosage: DOSAGE FORM: NOT SPECIFIED
     Route: 065
  27. CICLOSPORIN [Suspect]
     Active Substance: CYCLOSPORINE
     Dosage: DOSAGE FORM: NOT SPECIFIED
     Route: 065
  28. VINCRISTINE SULFATE. [Suspect]
     Active Substance: VINCRISTINE SULFATE
     Indication: ACUTE LYMPHOCYTIC LEUKAEMIA
     Route: 065
  29. DAUNORUBICIN [Suspect]
     Active Substance: DAUNORUBICIN
     Indication: ACUTE LYMPHOCYTIC LEUKAEMIA
     Route: 065
  30. METHOTREXATE. [Suspect]
     Active Substance: METHOTREXATE
     Dosage: DOSAGE FORM: NOT SPECIFIED
     Route: 065
  31. CICLOSPORIN [Suspect]
     Active Substance: CYCLOSPORINE
     Indication: ACUTE LYMPHOCYTIC LEUKAEMIA
     Route: 065
  32. DEXAMETHASONE. [Suspect]
     Active Substance: DEXAMETHASONE
     Dosage: DOSAGE FORM: NOT SPECIFIED
     Route: 065
  33. HYDROCORTISONE. [Suspect]
     Active Substance: HYDROCORTISONE
     Dosage: DOSAGE FORM: NOT SPECIFIED
     Route: 065
  34. PEGASPARGASE [Suspect]
     Active Substance: PEGASPARGASE
     Indication: ACUTE LYMPHOCYTIC LEUKAEMIA
     Route: 065
  35. PREDNISONE. [Suspect]
     Active Substance: PREDNISONE
     Route: 065
  36. VINCRISTINE SULFATE. [Suspect]
     Active Substance: VINCRISTINE SULFATE
     Route: 065
  37. FOLINIC ACID [Suspect]
     Active Substance: LEUCOVORIN
     Route: 065
  38. UROMITEXAN (MESNA INJECTION) 100MG/ML [Suspect]
     Active Substance: MESNA
     Dosage: DOSAGE FORM: NOT SPECIFIED
     Route: 065
  39. ASPARAGINASE [Suspect]
     Active Substance: ASPARAGINASE
     Indication: ACUTE LYMPHOCYTIC LEUKAEMIA
     Route: 065
  40. ETOPOSIDE. [Suspect]
     Active Substance: ETOPOSIDE
     Dosage: DOSAGE FORM: NOT SPECIFIED
     Route: 065
  41. MERCAPTOPURINE. [Suspect]
     Active Substance: MERCAPTOPURINE
     Dosage: DOSAGE FORM: NOT SPECIFIED
     Route: 065
  42. METHOTREXATE. [Suspect]
     Active Substance: METHOTREXATE
     Dosage: DOSAGE FORM: NOT SPECIFIED
     Route: 065

REACTIONS (4)
  - Bacterial infection [Fatal]
  - Pseudomonal sepsis [Fatal]
  - Bronchopulmonary aspergillosis [Fatal]
  - Viral infection [Fatal]
